FAERS Safety Report 11455137 (Version 1)
Quarter: 2015Q3

REPORT INFORMATION
  Report Type: Report from Study
  Country: CA (occurrence: CA)
  Receive Date: 20150903
  Receipt Date: 20150903
  Transmission Date: 20151125
  Serious: Yes (Other)
  Sender: FDA-Public Use
  Company Number: CA-ABBVIE-15K-028-1454563-00

PATIENT
  Sex: Female
  Weight: 53.12 kg

DRUGS (1)
  1. HUMIRA [Suspect]
     Active Substance: ADALIMUMAB
     Indication: RHEUMATOID ARTHRITIS
     Route: 058
     Dates: start: 20100601

REACTIONS (6)
  - Vision blurred [Recovered/Resolved]
  - Musculoskeletal stiffness [Recovered/Resolved]
  - Glaucoma [Not Recovered/Not Resolved]
  - Blindness [Recovered/Resolved]
  - Ocular discomfort [Recovering/Resolving]
  - Hypoaesthesia [Recovered/Resolved]

NARRATIVE: CASE EVENT DATE: 2013
